FAERS Safety Report 5397271-4 (Version None)
Quarter: 2007Q3

REPORT INFORMATION
  Report Type: 
  Country: None (occurrence: None)
  Receive Date: 20070723
  Receipt Date: 20070717
  Transmission Date: 20080115
  Serious: Yes (Life-Threatening, Hospitalization)
  Sender: FDA-Public Use
  Company Number: 2006SP007379

PATIENT
  Age: 72 Year
  Sex: Female
  Weight: 60 kg

DRUGS (9)
  1. TEMODAL [Suspect]
     Indication: OLIGODENDROGLIOMA
     Dosage: 75 MG/M2; QD; PO
     Route: 048
     Dates: start: 20061020, end: 20061114
  2. BAKTAR [Concomitant]
  3. PREDNISOLONE [Concomitant]
  4. ADALAT [Concomitant]
  5. NASEA OD [Concomitant]
  6. PRIMPERAN INJ [Concomitant]
  7. HUMULIN 70/30 [Concomitant]
  8. CANDESARTAN CILEXETIL [Concomitant]
  9. ADALAT [Concomitant]

REACTIONS (7)
  - BLOOD PRESSURE DECREASED [None]
  - BRADYCARDIA [None]
  - INTERSTITIAL LUNG DISEASE [None]
  - LOSS OF CONSCIOUSNESS [None]
  - PULMONARY ARTERY THROMBOSIS [None]
  - PULMONARY INFARCTION [None]
  - RIGHT VENTRICULAR FAILURE [None]
